FAERS Safety Report 16590844 (Version 1)
Quarter: 2019Q3

REPORT INFORMATION
  Report Type: Spontaneous
  Country: US (occurrence: US)
  Receive Date: 20190717
  Receipt Date: 20190717
  Transmission Date: 20191004
  Serious: Yes (Other)
  Sender: FDA-Public Use
  Company Number: None

PATIENT
  Age: 41 Year
  Sex: Female
  Weight: 90 kg

DRUGS (14)
  1. XTAMPZA [Suspect]
     Active Substance: OXYCODONE
     Indication: SCIATICA
     Dosage: ?          QUANTITY:60 CAPSULE(S);?
     Route: 048
     Dates: start: 20190713
  2. XTAMPZA [Suspect]
     Active Substance: OXYCODONE
     Indication: SCOLIOSIS
     Dosage: ?          QUANTITY:60 CAPSULE(S);?
     Route: 048
     Dates: start: 20190713
  3. XTAMPZA [Suspect]
     Active Substance: OXYCODONE
     Indication: SPINAL OSTEOARTHRITIS
     Dosage: ?          QUANTITY:60 CAPSULE(S);?
     Route: 048
     Dates: start: 20190713
  4. XAMPZA EL [Concomitant]
  5. MAXALT [Concomitant]
     Active Substance: RIZATRIPTAN BENZOATE
  6. PRENATAL VITAMINS [Concomitant]
     Active Substance: VITAMINS
  7. OXYCODONE [Concomitant]
     Active Substance: OXYCODONE
  8. PROZAC [Concomitant]
     Active Substance: FLUOXETINE HYDROCHLORIDE
  9. TUMERIC [Concomitant]
     Active Substance: HERBALS\TURMERIC
  10. LYSINE [Concomitant]
     Active Substance: LYSINE
  11. ZOFRAN [Concomitant]
     Active Substance: ONDANSETRON HYDROCHLORIDE
  12. FISH OIL [Concomitant]
     Active Substance: FISH OIL
  13. GOODYS [Concomitant]
     Active Substance: ACETAMINOPHEN\ASPIRIN\CAFFEINE
  14. ZYRTEC [Concomitant]
     Active Substance: CETIRIZINE HYDROCHLORIDE

REACTIONS (14)
  - Swelling [None]
  - Dizziness [None]
  - Throat irritation [None]
  - Fall [None]
  - Sleep-related eating disorder [None]
  - Headache [None]
  - Abnormal dreams [None]
  - Dysphonia [None]
  - Nightmare [None]
  - Hyperphagia [None]
  - Somnambulism [None]
  - Somnolence [None]
  - Abnormal sleep-related event [None]
  - Nausea [None]

NARRATIVE: CASE EVENT DATE: 20190714
